FAERS Safety Report 7560673-1 (Version None)
Quarter: 2011Q2

REPORT INFORMATION
  Report Type: 
  Country: None (occurrence: None)
  Receive Date: 20110614
  Receipt Date: 20110602
  Transmission Date: 20111010
  Serious: Yes (Hospitalization)
  Sender: FDA-Public Use
  Company Number: 944557

PATIENT
  Age: 75 Year
  Sex: Male

DRUGS (15)
  1. ASPIRIN [Concomitant]
  2. VALPROATE SODIUM [Concomitant]
  3. (TPAZODONE HYDROCHLORIDE) [Concomitant]
  4. AMLODIPINE [Concomitant]
  5. (ZOPICLONE) [Concomitant]
  6. DIPYRIDAMOLE [Concomitant]
  7. CITALOPRAM HYDROBROMIDE [Concomitant]
  8. OMEPRAZOLE [Concomitant]
  9. TAMSULOSIN HCL [Concomitant]
  10. ALLOPURINOL [Concomitant]
  11. LACTULOSE [Concomitant]
  12. ACETAMINOPHEN [Concomitant]
  13. PIPERACILLIN AND TAZOBACTAM [Suspect]
     Indication: PNEUMONIA
     Dosage: 4.5 G GRAM(S) ( 1 DAY), INTRAVENOUS (NOT OTHERWISE SPECIFIED)
     Route: 042
     Dates: start: 20110426, end: 20110503
  14. NITROGLYCERIN [Concomitant]
  15. SIMVASTATIN [Concomitant]

REACTIONS (1)
  - NEUTROPENIA [None]
